FAERS Safety Report 19497853 (Version 1)
Quarter: 2021Q3

REPORT INFORMATION
  Report Type: Report from Study
  Country: CN (occurrence: CN)
  Receive Date: 20210706
  Receipt Date: 20210706
  Transmission Date: 20211014
  Serious: Yes (Other)
  Sender: FDA-Public Use
  Company Number: CN-TAKEDA-2021TUS041472

PATIENT
  Age: 73 Year
  Sex: Female
  Weight: 62 kg

DRUGS (14)
  1. TORASEMIDE [Concomitant]
     Active Substance: TORSEMIDE
     Dosage: 10 MILLIGRAM, BID
     Route: 042
     Dates: start: 20210524, end: 20210524
  2. SPIRONOLACTONE. [Concomitant]
     Active Substance: SPIRONOLACTONE
     Dosage: 20 MILLIGRAM, QD
     Route: 048
     Dates: start: 20210523, end: 20210528
  3. SODIUM BICARBONATE. [Concomitant]
     Active Substance: SODIUM BICARBONATE
     Dosage: 2 GRAM, TID
     Route: 042
     Dates: start: 20210522, end: 20210522
  4. GLUCOSE [Concomitant]
     Active Substance: DEXTROSE
     Dosage: 500 MILLILITER, QD
     Route: 042
     Dates: start: 20210522, end: 20210522
  5. LENALIDOMIDE [Concomitant]
     Active Substance: LENALIDOMIDE
     Indication: PLASMA CELL MYELOMA
     Dosage: 10 MILLIGRAM, QD
     Route: 048
     Dates: start: 20210525
  6. HAIKUN SHENXI [Concomitant]
     Dosage: 0.88 GRAM, TID
     Route: 048
     Dates: start: 20210523, end: 20210528
  7. NIAO DU QING [Concomitant]
     Dosage: 5 GRAM, QD
     Route: 048
     Dates: start: 20210523, end: 20210528
  8. ASPIRIN. [Concomitant]
     Active Substance: ASPIRIN
     Indication: PROPHYLAXIS
     Dosage: 100 MILLIGRAM, QD
     Route: 048
     Dates: start: 20210525, end: 20210528
  9. SODIUM BICARBONATE. [Concomitant]
     Active Substance: SODIUM BICARBONATE
     Dosage: 2 GRAM, QD
     Route: 042
     Dates: start: 20210523, end: 20210528
  10. TORASEMIDE [Concomitant]
     Active Substance: TORSEMIDE
     Dosage: 20 MILLIGRAM, QD
     Route: 042
     Dates: start: 20210523, end: 20210525
  11. IXAZOMIB [Suspect]
     Active Substance: IXAZOMIB
     Indication: PLASMA CELL MYELOMA
     Dosage: 4 MILLIGRAM, QD
     Route: 048
     Dates: start: 20210525
  12. DEXAMETHASONE SODIUM PHOSPHATE. [Concomitant]
     Active Substance: DEXAMETHASONE SODIUM PHOSPHATE
     Dosage: 10 MILLIGRAM, QD
     Route: 042
     Dates: start: 20210522, end: 20210524
  13. HYDROTALCITE [Concomitant]
     Active Substance: HYDROTALCITE
     Dosage: 0.5 GRAM, TID
     Route: 048
     Dates: start: 20210523, end: 20210528
  14. FUROSEMIDE. [Concomitant]
     Active Substance: FUROSEMIDE
     Dosage: 20 MILLIGRAM, QD
     Route: 048
     Dates: start: 20210523, end: 20210528

REACTIONS (3)
  - Aspartate aminotransferase increased [Recovered/Resolved]
  - Hypokalaemia [Recovered/Resolved]
  - Alanine aminotransferase increased [Recovered/Resolved]

NARRATIVE: CASE EVENT DATE: 20210526
